FAERS Safety Report 5093093-2 (Version None)
Quarter: 2006Q3

REPORT INFORMATION
  Report Type: 
  Country: None (occurrence: None)
  Receive Date: 20060828
  Receipt Date: 20060810
  Transmission Date: 20061208
  Serious: Yes (Other)
  Sender: FDA-Public Use
  Company Number: TRP_0851_2006

PATIENT
  Age: 57 Year
  Sex: Male
  Weight: 93.8946 kg

DRUGS (4)
  1. RIBASPHERE [Suspect]
     Indication: HEPATITIS C
     Dosage: DF PO
     Route: 048
     Dates: start: 20050912
  2. PEG-INTRON [Suspect]
     Indication: HEPATITIS C
     Dosage: DF SC
     Route: 058
     Dates: start: 20050912
  3. BENAZEPRIL HYDROCHLORIDE [Concomitant]
  4. HYDROCHLOROTHIAZIDE [Concomitant]

REACTIONS (10)
  - ANAEMIA [None]
  - ANGER [None]
  - ANXIETY [None]
  - DEPRESSION [None]
  - HYPOTRICHOSIS [None]
  - IRRITABILITY [None]
  - PARANOIA [None]
  - SKIN PAPILLOMA [None]
  - VISUAL ACUITY REDUCED [None]
  - WEIGHT DECREASED [None]
